FAERS Safety Report 22170844 (Version 1)
Quarter: 2023Q2

REPORT INFORMATION
  Report Type: Spontaneous
  Country: US (occurrence: None)
  Receive Date: 20230403
  Receipt Date: 20230403
  Transmission Date: 20230721
  Serious: Yes (Death)
  Sender: FDA-Public Use
  Company Number: None

PATIENT
  Age: 61 Year
  Sex: Female

DRUGS (1)
  1. CINACALCET [Suspect]
     Active Substance: CINACALCET
     Dosage: FREQUENCY : DAILY;?
     Route: 048
     Dates: start: 20221031

REACTIONS (1)
  - Death [None]

NARRATIVE: CASE EVENT DATE: 20230308
